FAERS Safety Report 5001894-1 (Version None)
Quarter: 2006Q2

REPORT INFORMATION
  Report Type: 
  Country: None (occurrence: None)
  Receive Date: 20060515
  Receipt Date: 20050516
  Transmission Date: 20061013
  Serious: Yes (Death, Hospitalization)
  Sender: FDA-Public Use
  Company Number: US-MERCK-0505USA01963

PATIENT
  Age: 80 Year
  Sex: Male
  Weight: 88 kg

DRUGS (2)
  1. VIOXX [Suspect]
     Indication: ARTHRALGIA
     Route: 048
     Dates: start: 20000516, end: 20030525
  2. VIOXX [Suspect]
     Indication: ARTHRITIS
     Route: 048
     Dates: start: 20000516, end: 20030525

REACTIONS (11)
  - ARTHROPATHY [None]
  - CAROTID ARTERY OCCLUSION [None]
  - CATARACT [None]
  - CEREBRAL INFARCTION [None]
  - CONFUSIONAL STATE [None]
  - HYPOTHYROIDISM [None]
  - NEPHROPATHY [None]
  - PALLIATIVE CARE [None]
  - PARKINSON'S DISEASE [None]
  - PNEUMONIA [None]
  - POSTOPERATIVE FEVER [None]
